FAERS Safety Report 24458690 (Version 1)
Quarter: 2024Q4

REPORT INFORMATION
  Report Type: Spontaneous
  Country: US (occurrence: US)
  Receive Date: 20241018
  Receipt Date: 20241018
  Transmission Date: 20250115
  Serious: No
  Sender: DERMAVANT SCIENCES, INC.
  Company Number: US-Dermavant-001290

PATIENT

DRUGS (1)
  1. VTAMA [Suspect]
     Active Substance: TAPINAROF

REACTIONS (3)
  - Skin burning sensation [Unknown]
  - Pruritus [Unknown]
  - Skin injury [Unknown]
